FAERS Safety Report 4279951-7 (Version None)
Quarter: 2004Q1

REPORT INFORMATION
  Report Type: 
  Country: None (occurrence: None)
  Receive Date: 20040126
  Receipt Date: 20040121
  Transmission Date: 20041129
  Serious: Yes (Hospitalization)
  Sender: FDA-Public Use
  Company Number: 001#0#2004-00013

PATIENT
  Age: 80 Year
  Sex: Female

DRUGS (12)
  1. ISOKET-RETARD-2D (ISOSORBIDE DINITRATE) [Suspect]
     Indication: CORONARY ARTERY ATHEROSCLEROSIS
     Dosage: 20 MG (20MG 1 IN 1 DAY (S)) ORAL
     Route: 048
     Dates: start: 20020101
  2. ISOKET-RETARD-2D (ISOSORBIDE DINITRATE) [Suspect]
     Indication: CORONARY ARTERY DISEASE
     Dosage: 20 MG (20MG 1 IN 1 DAY (S)) ORAL
     Route: 048
     Dates: start: 20020101
  3. ALLOPURINOL [Concomitant]
  4. XIPAMIDE (MINERAL OIL LIGHT, PARAFFIN, PETROLATUM, WOOL ALCOHOLS) [Concomitant]
  5. ACETYLSALICYLIC ACID SRT [Concomitant]
  6. MOLSIDOMINE (MOLSIDOMINE) [Concomitant]
  7. CARVEDILOL [Concomitant]
  8. LEVOTHYROXINE SODIUM [Concomitant]
  9. ATORVASTATIN (ATORVASTATIN) [Concomitant]
  10. TORSEMIDE [Concomitant]
  11. ENALAPRIL MALEATE [Concomitant]
  12. INSULIN HUMAN (INSULIN HUMAN) [Concomitant]

REACTIONS (4)
  - ASTHENIA [None]
  - BLOOD PRESSURE DECREASED [None]
  - DIZZINESS [None]
  - DRUG INTERACTION [None]
